FAERS Safety Report 5119876-8 (Version None)
Quarter: 2006Q4

REPORT INFORMATION
  Report Type: 
  Country: None (occurrence: None)
  Receive Date: 20061003
  Receipt Date: 20060925
  Transmission Date: 20070319
  Serious: Yes (Other)
  Sender: FDA-Public Use
  Company Number: DE-BOEHRINGER INGELHEIM PHARMACEUTICALS, INC.-2006-DE-05112DE

PATIENT
  Sex: Female

DRUGS (1)
  1. SIFROL [Suspect]
     Indication: PARKINSON'S DISEASE

REACTIONS (3)
  - OEDEMA PERIPHERAL [None]
  - RETINAL DISORDER [None]
  - VITREOUS DEGENERATION [None]
